FAERS Safety Report 21462332 (Version 1)
Quarter: 2022Q4

REPORT INFORMATION
  Report Type: Other
  Country: US (occurrence: None)
  Receive Date: 20221016
  Receipt Date: 20221016
  Transmission Date: 20230112
  Serious: Yes (Other)
  Sender: FDA-Public Use
  Company Number: US-ROCHE-3199512

PATIENT

DRUGS (1)
  1. COBIMETINIB [Suspect]
     Active Substance: COBIMETINIB
     Indication: Rosai-Dorfman syndrome
     Dosage: 20 MG ONCE DAILY AS A SINGLE AGENT FOR 21 DAYS IN A 28-DAY CYCLE.
     Route: 048

REACTIONS (2)
  - Cardiotoxicity [Unknown]
  - Off label use [Unknown]
